FAERS Safety Report 6922017-5 (Version None)
Quarter: 2010Q3

REPORT INFORMATION
  Report Type: 
  Country: None (occurrence: None)
  Receive Date: 20100812
  Receipt Date: 20100802
  Transmission Date: 20110219
  Serious: Yes (Hospitalization)
  Sender: FDA-Public Use
  Company Number: DE-ABBOTT-10P-062-0661498-00

PATIENT
  Sex: Male
  Weight: 74 kg

DRUGS (2)
  1. KALETRA [Suspect]
     Indication: HIV INFECTION
     Route: 048
     Dates: start: 20080415
  2. TRUVADA [Suspect]
     Indication: HIV INFECTION
     Dates: start: 20080415

REACTIONS (6)
  - ANAL CANCER [None]
  - ANOGENITAL WARTS [None]
  - BRONCHITIS [None]
  - LEUKOPENIA [None]
  - SQUAMOUS CELL CARCINOMA [None]
  - THROMBOCYTOPENIA [None]
